FAERS Safety Report 24538319 (Version 1)
Quarter: 2024Q4

REPORT INFORMATION
  Report Type: Spontaneous
  Country: PE (occurrence: PE)
  Receive Date: 20241023
  Receipt Date: 20241023
  Transmission Date: 20250115
  Serious: Yes (Other)
  Sender: ROCHE
  Company Number: PE-ROCHE-10000108918

PATIENT
  Sex: Female
  Weight: 78 kg

DRUGS (2)
  1. TRASTUZUMAB [Suspect]
     Active Substance: TRASTUZUMAB
     Indication: Breast cancer
     Dosage: DOSE WAS NOT REPORTED
     Route: 042
     Dates: start: 201809
  2. TRASTUZUMAB [Suspect]
     Active Substance: TRASTUZUMAB
     Dosage: DOSE WAS NOT REPORTED, 6 CYCLES
     Route: 042
     Dates: start: 202404

REACTIONS (4)
  - Bone cancer [Unknown]
  - Spinal disorder [Unknown]
  - Bone disorder [Unknown]
  - Tumour marker increased [Unknown]
